FAERS Safety Report 10162499 (Version 2)
Quarter: 2014Q2

REPORT INFORMATION
  Report Type: Spontaneous
  Country: US (occurrence: US)
  Receive Date: 20140509
  Receipt Date: 20140617
  Transmission Date: 20141212
  Serious: Yes (Other)
  Sender: FDA-Public Use
  Company Number: US-PFIZER INC-2014125037

PATIENT
  Age: 22 Year
  Sex: Female
  Weight: 68.02 kg

DRUGS (1)
  1. LYRICA [Suspect]
     Indication: MIGRAINE PROPHYLAXIS
     Dosage: 300 MG, 2X/DAY
     Route: 048
     Dates: start: 2013

REACTIONS (1)
  - Gastrointestinal disorder [Unknown]
